FAERS Safety Report 21210021 (Version 2)
Quarter: 2022Q3

REPORT INFORMATION
  Report Type: Spontaneous
  Country: US (occurrence: US)
  Receive Date: 20220813
  Receipt Date: 20220824
  Transmission Date: 20221027
  Serious: Yes (Death, Hospitalization, Other)
  Sender: FDA-Public Use
  Company Number: US-MALLINCKRODT-T202204297

PATIENT
  Sex: Female
  Weight: 137 kg

DRUGS (2)
  1. H.P. ACTHAR [Suspect]
     Active Substance: CORTICOTROPIN
     Indication: Multiple sclerosis
     Dosage: 80 UNITS, TWICE A WEEK
     Route: 030
  2. H.P. ACTHAR [Suspect]
     Active Substance: CORTICOTROPIN
     Indication: Lupus nephritis

REACTIONS (3)
  - Death [Fatal]
  - Lung disorder [Unknown]
  - COVID-19 [Unknown]

NARRATIVE: CASE EVENT DATE: 20220101
